FAERS Safety Report 4509034-X (Version None)
Quarter: 2004Q4

REPORT INFORMATION
  Report Type: 
  Country: None (occurrence: None)
  Receive Date: 20041123
  Receipt Date: 20031002
  Transmission Date: 20050328
  Serious: Yes (Hospitalization)
  Sender: FDA-Public Use
  Company Number: PHRM2003FR02610

PATIENT
  Age: 47 Year
  Sex: Female

DRUGS (1)
  1. TAREG [Suspect]
     Dosage: 40 MG/DAY
     Route: 048
     Dates: start: 20020501, end: 20030701

REACTIONS (6)
  - BENIGN HYDATIDIFORM MOLE [None]
  - MUSCULAR WEAKNESS [None]
  - MYALGIA [None]
  - MYOPATHY [None]
  - MYOSITIS [None]
  - PARANEOPLASTIC SYNDROME [None]
